FAERS Safety Report 18929461 (Version 1)
Quarter: 2021Q1

REPORT INFORMATION
  Report Type: Spontaneous
  Country: US (occurrence: US)
  Receive Date: 20210223
  Receipt Date: 20210223
  Transmission Date: 20210420
  Serious: No
  Sender: FDA-Public Use
  Company Number: US-ROCHE-2716084

PATIENT
  Sex: Female

DRUGS (4)
  1. NUTROPIN [Suspect]
     Active Substance: SOMATROPIN
  2. NUTROPIN [Suspect]
     Active Substance: SOMATROPIN
  3. NUTROPIN [Suspect]
     Active Substance: SOMATROPIN
     Indication: HYPOPITUITARISM
     Dosage: 10MG/2ML, ONGOING: YES
     Route: 058
     Dates: start: 20170126
  4. NUTROPIN [Suspect]
     Active Substance: SOMATROPIN
     Indication: HYPOTHALAMO-PITUITARY DISORDER

REACTIONS (1)
  - Localised infection [Unknown]
